FAERS Safety Report 9377603 (Version 2)
Quarter: 2013Q3

REPORT INFORMATION
  Report Type: Report from Study
  Country: US (occurrence: US)
  Receive Date: 20130701
  Receipt Date: 20130709
  Transmission Date: 20140515
  Serious: No
  Sender: FDA-Public Use
  Company Number: US-NOVOPROD-381298

PATIENT
  Age: 67 Year
  Sex: Male
  Weight: 112.15 kg

DRUGS (1)
  1. LIRAGLUTIDE FLEXPEN [Suspect]
     Indication: TYPE 2 DIABETES MELLITUS
     Dosage: 1.8 MG, QD
     Route: 058
     Dates: start: 20120320, end: 20130503

REACTIONS (1)
  - Lipase increased [Not Recovered/Not Resolved]
